FAERS Safety Report 19442031 (Version 1)
Quarter: 2021Q2

REPORT INFORMATION
  Report Type: Spontaneous
  Country: US (occurrence: US)
  Receive Date: 20210621
  Receipt Date: 20210621
  Transmission Date: 20210717
  Serious: Yes (Other)
  Sender: FDA-Public Use
  Company Number: US-DRREDDYS-LIT/USA/21/0136568

PATIENT
  Age: 44 Year
  Sex: Female

DRUGS (5)
  1. OXYTOCIN. [Suspect]
     Active Substance: OXYTOCIN
     Indication: POSTPARTUM HAEMORRHAGE
     Dosage: 18 MILLIUNITS
     Route: 042
  2. OXYTOCIN. [Suspect]
     Active Substance: OXYTOCIN
     Dosage: 60 UNITS OF OXYTOCIN WAS ADMINISTERED
  3. MISOPROSTOL. [Suspect]
     Active Substance: MISOPROSTOL
     Indication: POSTPARTUM HAEMORRHAGE
  4. METHYLERGONOVINE [Suspect]
     Active Substance: METHYLERGONOVINE
     Indication: POSTPARTUM HAEMORRHAGE
     Route: 030
  5. METHYLERGONOVINE [Suspect]
     Active Substance: METHYLERGONOVINE
     Route: 030

REACTIONS (1)
  - Drug ineffective [Unknown]
